FAERS Safety Report 17023813 (Version 8)
Quarter: 2021Q4

REPORT INFORMATION
  Report Type: Spontaneous
  Country: JP (occurrence: JP)
  Receive Date: 20191113
  Receipt Date: 20211019
  Transmission Date: 20220303
  Serious: Yes (Other)
  Sender: FDA-Public Use
  Company Number: JP-ROCHE-2445513

PATIENT
  Age: 67 Year
  Sex: Female

DRUGS (22)
  1. VALGANCICLOVIR [Suspect]
     Active Substance: VALGANCICLOVIR
     Indication: Cytomegalovirus test positive
     Route: 048
     Dates: end: 20190401
  2. AZATHIOPRINE [Suspect]
     Active Substance: AZATHIOPRINE
     Indication: Product used for unknown indication
     Route: 048
     Dates: end: 20190724
  3. AZATHIOPRINE [Suspect]
     Active Substance: AZATHIOPRINE
     Route: 048
     Dates: end: 20190901
  4. AZATHIOPRINE [Suspect]
     Active Substance: AZATHIOPRINE
     Route: 048
     Dates: end: 20190625
  5. AZATHIOPRINE [Suspect]
     Active Substance: AZATHIOPRINE
     Route: 048
     Dates: end: 20191016
  6. AZATHIOPRINE [Suspect]
     Active Substance: AZATHIOPRINE
     Route: 048
     Dates: end: 20190709
  7. AZATHIOPRINE [Suspect]
     Active Substance: AZATHIOPRINE
     Route: 048
     Dates: end: 20190806
  8. AZATHIOPRINE [Suspect]
     Active Substance: AZATHIOPRINE
     Route: 048
     Dates: end: 20190907
  9. AZATHIOPRINE [Suspect]
     Active Substance: AZATHIOPRINE
     Route: 048
     Dates: end: 20200205
  10. CYCLOPHOSPHAMIDE [Suspect]
     Active Substance: CYCLOPHOSPHAMIDE
     Indication: Product used for unknown indication
     Route: 065
  11. ELDECALCITOL [Concomitant]
     Active Substance: ELDECALCITOL
     Route: 048
  12. CODEINE PHOSPHATE [Concomitant]
     Active Substance: CODEINE PHOSPHATE
     Route: 048
     Dates: start: 20190709
  13. MAGNESIUM OXIDE [Concomitant]
     Active Substance: MAGNESIUM OXIDE
     Route: 048
  14. SITAFLOXACIN [Concomitant]
     Active Substance: SITAFLOXACIN
     Dates: start: 20190129
  15. PREDNISOLONE [Concomitant]
     Active Substance: PREDNISOLONE
     Route: 065
  16. VIDARABINE [Concomitant]
     Active Substance: VIDARABINE
     Route: 061
     Dates: start: 20190131, end: 20190204
  17. LANSOPRAZOLE [Concomitant]
     Active Substance: LANSOPRAZOLE
     Route: 048
     Dates: start: 20190201
  18. SULFAMETHOXAZOLE\TRIMETHOPRIM [Concomitant]
     Active Substance: SULFAMETHOXAZOLE\TRIMETHOPRIM
     Route: 048
     Dates: start: 20190206
  19. MESNA [Concomitant]
     Active Substance: MESNA
     Route: 042
     Dates: start: 20190206, end: 20190410
  20. FLUTICASONE FUROATE [Concomitant]
     Active Substance: FLUTICASONE FUROATE
     Route: 045
     Dates: start: 20190516
  21. LANSOPRAZOLE [Concomitant]
     Active Substance: LANSOPRAZOLE
     Route: 048
     Dates: start: 20190131
  22. CARBOCYSTEINE [Concomitant]
     Active Substance: CARBOCYSTEINE
     Dates: start: 20190901, end: 20190907

REACTIONS (14)
  - Pneumonia bacterial [Recovered/Resolved]
  - Coating in mouth [Recovered/Resolved]
  - Liver function test abnormal [Recovered/Resolved]
  - Amylase increased [Recovered/Resolved]
  - Pneumomediastinum [Recovered/Resolved]
  - Dental caries [Not Recovered/Not Resolved]
  - Hypertension [Recovering/Resolving]
  - Insomnia [Not Recovered/Not Resolved]
  - Hyperglycaemia [Recovered/Resolved]
  - Cytomegalovirus test positive [Recovered/Resolved]
  - Epistaxis [Recovered/Resolved]
  - Gastroenteritis viral [Recovered/Resolved]
  - Weight decreased [Not Recovered/Not Resolved]
  - Oral herpes [Recovered/Resolved]

NARRATIVE: CASE EVENT DATE: 20190113
